FAERS Safety Report 14088482 (Version 3)
Quarter: 2018Q2

REPORT INFORMATION
  Report Type: Spontaneous
  Country: IE (occurrence: IE)
  Receive Date: 20171013
  Receipt Date: 20180518
  Transmission Date: 20180711
  Serious: Yes (Disabling, Other)
  Sender: FDA-Public Use
  Company Number: IE-TEVA-813548ACC

PATIENT
  Age: 62 Year
  Sex: Male
  Weight: 84 kg

DRUGS (5)
  1. CIPROFLOXACIN TEVA [Suspect]
     Active Substance: CIPROFLOXACIN
     Indication: INFLAMMATION
     Dosage: 1000 MILLIGRAM DAILY;
     Route: 048
     Dates: start: 20170913, end: 20170922
  2. OTOSPORIN EAR DROPS [Concomitant]
     Indication: FUNGAL INFECTION
     Dosage: HYDROCORTISONE - STRENGTH: 10 MILLGRAM; NEOMYCIN SULFATE - STREGNTH: 3400 IU; POLYMYXIN B SULFATE -
  3. CIPROFLOXACIN TEVA [Suspect]
     Active Substance: CIPROFLOXACIN
     Indication: EPIDIDYMITIS
  4. EXPUTEX 250MG / 5ML ORAL SOLUTION [Concomitant]
     Indication: COUGH
     Dosage: AS REQUIRED
     Route: 048
  5. LOTRIDERM [Concomitant]
     Active Substance: BETAMETHASONE DIPROPIONATE\CLOTRIMAZOLE
     Indication: ANAL FUNGAL INFECTION
     Route: 048

REACTIONS (22)
  - Hypoaesthesia [Recovered/Resolved]
  - Insomnia [Recovered/Resolved]
  - Emotional distress [Recovered/Resolved]
  - Myalgia [Recovered/Resolved]
  - Feeling of despair [Recovered/Resolved]
  - Asthenia [Recovered/Resolved]
  - Malaise [Recovered/Resolved]
  - Chest discomfort [Recovered/Resolved]
  - Dyspnoea [Recovered/Resolved]
  - Depressed mood [Recovered/Resolved]
  - Body temperature fluctuation [Recovered/Resolved]
  - Arthralgia [Recovered/Resolved]
  - Depression [Recovered/Resolved]
  - Night sweats [Recovered/Resolved]
  - Fatigue [Recovered/Resolved]
  - Decreased interest [Recovered/Resolved]
  - Mobility decreased [Recovered/Resolved]
  - Apathy [Recovered/Resolved]
  - Gait disturbance [Not Recovered/Not Resolved]
  - Physical disability [Recovered/Resolved]
  - Mood altered [Recovered/Resolved]
  - Decreased appetite [Recovered/Resolved]

NARRATIVE: CASE EVENT DATE: 20170915
